FAERS Safety Report 12762944 (Version 1)
Quarter: 2016Q3

REPORT INFORMATION
  Report Type: Spontaneous
  Country: US (occurrence: US)
  Receive Date: 20160915
  Receipt Date: 20160915
  Transmission Date: 20161109
  Serious: Yes (Other)
  Sender: FDA-Public Use
  Company Number: None

PATIENT
  Age: 66 Year
  Sex: Female

DRUGS (1)
  1. ORENCIA [Suspect]
     Active Substance: ABATACEPT
     Indication: RHEUMATOID ARTHRITIS
     Route: 058
     Dates: start: 20160720, end: 20160803

REACTIONS (6)
  - Urinary tract infection [None]
  - Pain in extremity [None]
  - Headache [None]
  - Dizziness [None]
  - Vulvovaginal pain [None]
  - Urine output decreased [None]

NARRATIVE: CASE EVENT DATE: 20160803
